FAERS Safety Report 17706271 (Version 3)
Quarter: 2020Q3

REPORT INFORMATION
  Report Type: Spontaneous
  Country: US (occurrence: US)
  Receive Date: 20200424
  Receipt Date: 20200710
  Transmission Date: 20201102
  Serious: No
  Sender: FDA-Public Use
  Company Number: US-PFIZER INC-2020163019

PATIENT
  Age: 62 Year
  Sex: Female

DRUGS (4)
  1. IRON [Concomitant]
     Active Substance: IRON
     Dosage: UNK
  2. XELJANZ [Suspect]
     Active Substance: TOFACITINIB CITRATE
     Indication: COLITIS ULCERATIVE
     Dosage: 5 MG, 2X/DAY
     Route: 048
     Dates: start: 20191001
  3. XELJANZ [Suspect]
     Active Substance: TOFACITINIB CITRATE
     Dosage: 5 MG, 2X/DAY
     Route: 048
     Dates: start: 201910
  4. VITAMIN D3 [Concomitant]
     Active Substance: CHOLECALCIFEROL
     Dosage: UNK

REACTIONS (4)
  - Diarrhoea [Recovering/Resolving]
  - Abdominal discomfort [Recovering/Resolving]
  - Eye disorder [Unknown]
  - Drug ineffective [Unknown]
